FAERS Safety Report 21147196 (Version 1)
Quarter: 2022Q3

REPORT INFORMATION
  Report Type: Spontaneous
  Country: US (occurrence: US)
  Receive Date: 20220729
  Receipt Date: 20220729
  Transmission Date: 20221027
  Serious: Yes (Life-Threatening, Other)
  Sender: FDA-Public Use
  Company Number: US-Accord-270685

PATIENT
  Age: 6 Month
  Sex: Male

DRUGS (9)
  1. CISPLATIN [Suspect]
     Active Substance: CISPLATIN
     Indication: Pinealoblastoma
  2. ETOPOSIDE [Suspect]
     Active Substance: ETOPOSIDE
     Indication: Pinealoblastoma
  3. METHOTREXATE [Suspect]
     Active Substance: METHOTREXATE
     Indication: Pinealoblastoma
  4. CYCLOPHOSPHAMIDE [Suspect]
     Active Substance: CYCLOPHOSPHAMIDE
     Indication: Pinealoblastoma
  5. VINCRISTINE [Suspect]
     Active Substance: VINCRISTINE
     Indication: Pinealoblastoma
  6. CISPLATIN [Suspect]
     Active Substance: CISPLATIN
     Indication: Pinealoblastoma
  7. ETOPOSIDE [Suspect]
     Active Substance: ETOPOSIDE
     Indication: Pinealoblastoma
  8. CYCLOPHOSPHAMIDE [Suspect]
     Active Substance: CYCLOPHOSPHAMIDE
     Indication: Pinealoblastoma
  9. VINCRISTINE [Suspect]
     Active Substance: VINCRISTINE
     Indication: Pinealoblastoma

REACTIONS (5)
  - Pericardial effusion [Recovered/Resolved]
  - Cardiac arrest [Recovered/Resolved]
  - Thrombotic microangiopathy [Recovered/Resolved]
  - Bronchospasm [Recovered/Resolved]
  - Off label use [Unknown]
